FAERS Safety Report 19891194 (Version 1)
Quarter: 2021Q3

REPORT INFORMATION
  Report Type: Spontaneous
  Country: CN (occurrence: CN)
  Receive Date: 20210928
  Receipt Date: 20210928
  Transmission Date: 20211014
  Serious: Yes (Other)
  Sender: FDA-Public Use
  Company Number: CN-PFIZER INC-202101212577

PATIENT
  Age: 93 Year
  Sex: Male

DRUGS (2)
  1. CLOPIDOGREL HYDROGEN SULPHATE [Concomitant]
     Active Substance: CLOPIDOGREL BISULFATE
     Dosage: 75 MG, 1X/DAY
  2. LIPITOR [Suspect]
     Active Substance: ATORVASTATIN CALCIUM
     Indication: ACUTE CORONARY SYNDROME
     Dosage: 20 MG, 1X/DAY
     Route: 048
     Dates: start: 20210829, end: 20210902

REACTIONS (1)
  - Myoglobin blood increased [Recovering/Resolving]

NARRATIVE: CASE EVENT DATE: 20210901
